FAERS Safety Report 10532583 (Version 2)
Quarter: 2014Q4

REPORT INFORMATION
  Report Type: Spontaneous
  Country: US (occurrence: US)
  Receive Date: 20141021
  Receipt Date: 20141021
  Transmission Date: 20150529
  Serious: Yes (Other)
  Sender: FDA-Public Use
  Company Number: US-MUNDIPHARMA DS AND PHARMACOVIGILANCE-USA-2014-0116112

PATIENT
  Age: 42 Year
  Sex: Male
  Weight: 117.91 kg

DRUGS (2)
  1. OXYCONTIN [Suspect]
     Active Substance: OXYCODONE HYDROCHLORIDE
     Indication: PRODUCT USED FOR UNKNOWN INDICATION
     Dosage: 80 MG, UNK
     Dates: start: 2001
  2. OXYCONTIN [Suspect]
     Active Substance: OXYCODONE HYDROCHLORIDE
     Dosage: 900 MG DAILY

REACTIONS (23)
  - General physical health deterioration [Unknown]
  - Influenza [Unknown]
  - Poor peripheral circulation [Unknown]
  - Mydriasis [Unknown]
  - Impaired work ability [Unknown]
  - Insomnia [Unknown]
  - Hypogonadism [Unknown]
  - Decreased appetite [Unknown]
  - Nausea [Unknown]
  - Metabolic disorder [Unknown]
  - Asthenia [Unknown]
  - Tremor [Unknown]
  - Drug dependence [Unknown]
  - Pallor [Unknown]
  - Amnesia [Unknown]
  - Constipation [Unknown]
  - Gait disturbance [Unknown]
  - Feeling of body temperature change [Unknown]
  - Depression [Unknown]
  - Diarrhoea [Unknown]
  - Cold sweat [Unknown]
  - Drug level increased [Unknown]
  - Dysstasia [Unknown]

NARRATIVE: CASE EVENT DATE: 20110328
